FAERS Safety Report 16446765 (Version 6)
Quarter: 2019Q4

REPORT INFORMATION
  Report Type: Spontaneous
  Country: DE (occurrence: DE)
  Receive Date: 20190618
  Receipt Date: 20191120
  Transmission Date: 20200122
  Serious: Yes (Hospitalization)
  Sender: FDA-Public Use
  Company Number: DE-PFIZER INC-2019235842

PATIENT
  Age: 63 Year
  Sex: Female

DRUGS (3)
  1. FAVISTAN [Concomitant]
     Active Substance: METHIMAZOLE
     Dosage: 5 MG, WEEKLY
  2. LATANOPROST. [Suspect]
     Active Substance: LATANOPROST
     Indication: INTRAOCULAR PRESSURE INCREASED
     Dosage: UNK, 1X/DAY
     Dates: start: 20190515
  3. LATANOPROST. [Suspect]
     Active Substance: LATANOPROST
     Indication: GLAUCOMA
     Dosage: UNK, 1X/DAY
     Dates: start: 20190528, end: 2019

REACTIONS (6)
  - Eye irritation [Recovered/Resolved]
  - Sensation of foreign body [Recovering/Resolving]
  - Eye allergy [Not Recovered/Not Resolved]
  - Drug hypersensitivity [Not Recovered/Not Resolved]
  - Lacrimation increased [Unknown]
  - Eye pain [Recovering/Resolving]

NARRATIVE: CASE EVENT DATE: 20190516
